FAERS Safety Report 18685195 (Version 1)
Quarter: 2020Q4

REPORT INFORMATION
  Report Type: Spontaneous
  Country: JP (occurrence: JP)
  Receive Date: 20201231
  Receipt Date: 20201231
  Transmission Date: 20210114
  Serious: Yes (Other)
  Sender: FDA-Public Use
  Company Number: JP-BRISTOL-MYERS SQUIBB COMPANY-BMS-2020-112260

PATIENT
  Age: 8 Decade
  Sex: Male

DRUGS (4)
  1. OPDIVO [Suspect]
     Active Substance: NIVOLUMAB
     Indication: NON-SMALL CELL LUNG CANCER RECURRENT
     Dosage: 360 MG, Q3W
     Route: 041
     Dates: start: 20201207
  2. CARBOPLATIN. [Suspect]
     Active Substance: CARBOPLATIN
     Indication: NON-SMALL CELL LUNG CANCER RECURRENT
     Dosage: UNK, Q3WK
     Route: 041
     Dates: start: 20201207
  3. YERVOY [Suspect]
     Active Substance: IPILIMUMAB
     Indication: NON-SMALL CELL LUNG CANCER RECURRENT
     Dosage: 1 MILLIGRAM/KILOGRAM, Q6WK
     Route: 041
     Dates: start: 20201207
  4. PACLITAXEL. [Suspect]
     Active Substance: PACLITAXEL
     Indication: NON-SMALL CELL LUNG CANCER RECURRENT
     Dosage: UNK, Q3WK
     Route: 041
     Dates: start: 20201207

REACTIONS (1)
  - Febrile neutropenia [Recovered/Resolved]

NARRATIVE: CASE EVENT DATE: 202012
